FAERS Safety Report 5844052-0 (Version None)
Quarter: 2008Q3

REPORT INFORMATION
  Report Type: 
  Country: None (occurrence: None)
  Receive Date: 20080813
  Receipt Date: 20080803
  Transmission Date: 20090109
  Serious: No
  Sender: FDA-Public Use
  Company Number: IL-ELI_LILLY_AND_COMPANY-IL200808000398

PATIENT
  Age: 65 Year
  Sex: Female
  Weight: 70 kg

DRUGS (3)
  1. CYMBALTA [Suspect]
     Indication: DEPRESSION
     Dosage: 60 MG, DAILY (1/D)
     Route: 048
     Dates: start: 20071001, end: 20080701
  2. DEPALEPT [Concomitant]
     Dosage: 1200 MG, DAILY (1/D)
     Route: 048
     Dates: start: 20071001, end: 20080701
  3. ETOPAN [Concomitant]
     Indication: NECK PAIN
     Dosage: UNK, UNKNOWN
     Route: 065

REACTIONS (1)
  - LIVER FUNCTION TEST ABNORMAL [None]
